FAERS Safety Report 8826883 (Version 2)
Quarter: 2012Q4

REPORT INFORMATION
  Report Type: 
  Country: US (occurrence: US)
  Receive Date: 20121008
  Receipt Date: 20121011
  Transmission Date: 20130627
  Serious: Yes (Hospitalization)
  Sender: FDA-Public Use
  Company Number: US-AMGEN-USASP2012062729

PATIENT
  Age: 85 Year
  Sex: Male

DRUGS (2)
  1. NEUPOGEN [Suspect]
     Indication: CHEMOTHERAPY
     Dosage: UNK UNK, 2 times/wk
     Dates: start: 201104
  2. ANTINEOPLASTIC AGENTS [Concomitant]
     Indication: NON-HODGKIN^S LYMPHOMA

REACTIONS (3)
  - Asthenia [Not Recovered/Not Resolved]
  - White blood cell disorder [Not Recovered/Not Resolved]
  - Drug effect delayed [Not Recovered/Not Resolved]
